FAERS Safety Report 7332443-0 (Version None)
Quarter: 2011Q1

REPORT INFORMATION
  Report Type: 
  Country: None (occurrence: None)
  Receive Date: 20110304
  Receipt Date: 20110228
  Transmission Date: 20110831
  Serious: Yes (Death, Hospitalization, Other)
  Sender: FDA-Public Use
  Company Number: US-PFIZER INC-2005135070

PATIENT
  Sex: Male

DRUGS (7)
  1. WELLBUTRIN SR [Concomitant]
  2. NEURONTIN [Suspect]
     Indication: BACK PAIN
     Route: 048
     Dates: start: 20000425
  3. NEURONTIN [Suspect]
     Indication: BIPOLAR DISORDER
  4. ALPRAZOLAM [Suspect]
     Dates: start: 19980506
  5. PRILOSEC [Concomitant]
  6. ZOLOFT [Concomitant]
  7. ZYPREXA [Concomitant]

REACTIONS (8)
  - SUBSTANCE ABUSE [None]
  - COMPLETED SUICIDE [None]
  - DEPRESSION [None]
  - SUICIDAL IDEATION [None]
  - OVERDOSE [None]
  - TOXICITY TO VARIOUS AGENTS [None]
  - BACK PAIN [None]
  - DRUG INEFFECTIVE [None]
